FAERS Safety Report 21652281 (Version 1)
Quarter: 2022Q4

REPORT INFORMATION
  Report Type: Spontaneous
  Country: ES (occurrence: ES)
  Receive Date: 20221128
  Receipt Date: 20221128
  Transmission Date: 20230112
  Serious: Yes (Other)
  Sender: FDA-Public Use
  Company Number: None

PATIENT
  Age: 46 Year
  Sex: Female

DRUGS (1)
  1. TRIAMCINOLONE ACETONIDE [Suspect]
     Active Substance: TRIAMCINOLONE ACETONIDE
     Indication: Tendonitis
     Dosage: 10 MG, TOTAL (10 MG 4X)
     Route: 050
     Dates: start: 20220826, end: 20220826

REACTIONS (2)
  - Urticaria [Recovered/Resolved]
  - Contraindicated product prescribed [Recovered/Resolved]

NARRATIVE: CASE EVENT DATE: 20220826
